FAERS Safety Report 7057506-9 (Version None)
Quarter: 2010Q4

REPORT INFORMATION
  Report Type: 
  Country: None (occurrence: None)
  Receive Date: 20101021
  Receipt Date: 20101021
  Transmission Date: 20110411
  Serious: Yes (Hospitalization)
  Sender: FDA-Public Use
  Company Number: None

PATIENT
  Sex: Male
  Weight: 67 kg

DRUGS (2)
  1. GEMCITABINE [Suspect]
     Indication: PANCREATIC CARCINOMA
     Dosage: 1000/M2 D8 750MG/M2
     Dates: start: 20100930, end: 20101007
  2. ERLOTINIB HYDROCHLORIDE [Suspect]
     Indication: PANCREATIC CARCINOMA
     Dosage: 150MG
     Dates: start: 20101001, end: 20101004

REACTIONS (4)
  - CHILLS [None]
  - DIARRHOEA [None]
  - FULL BLOOD COUNT DECREASED [None]
  - PYREXIA [None]
